FAERS Safety Report 5284221-4 (Version None)
Quarter: 2007Q2

REPORT INFORMATION
  Report Type: 
  Country: None (occurrence: None)
  Receive Date: 20070403
  Receipt Date: 20070329
  Transmission Date: 20071010
  Serious: Yes (Life-Threatening)
  Sender: FDA-Public Use
  Company Number: PHBS2007NL05139

PATIENT
  Age: 37 Year
  Sex: Male
  Weight: 94 kg

DRUGS (3)
  1. TEGRETOL [Suspect]
     Indication: EPILEPSY
     Dosage: 200 MG, TID
     Route: 048
     Dates: start: 19800101
  2. DIPHANTOINE Z [Suspect]
     Indication: EPILEPSY
     Dosage: 1 DF, BID
     Route: 065
     Dates: start: 19980101
  3. RANITIDINUM [Concomitant]
     Dosage: 150 MG

REACTIONS (1)
  - DEPRESSION SUICIDAL [None]
